FAERS Safety Report 8153305-5 (Version None)
Quarter: 2012Q1

REPORT INFORMATION
  Report Type: 
  Country: None (occurrence: None)
  Receive Date: 20120221
  Receipt Date: 20120208
  Transmission Date: 20120608
  Serious: Yes (Other)
  Sender: FDA-Public Use
  Company Number: US-ELI_LILLY_AND_COMPANY-US201202003629

PATIENT
  Sex: Male

DRUGS (6)
  1. BUDESONIDE [Concomitant]
  2. REGLAN [Concomitant]
  3. SYNTHROID [Concomitant]
  4. PRILOSEC [Concomitant]
  5. CYMBALTA [Suspect]
     Dosage: 60 MG, QD
     Dates: start: 20100601
  6. CYMBALTA [Suspect]
     Dosage: 30 MG, UNK

REACTIONS (1)
  - GASTROINTESTINAL TUBE INSERTION [None]
